FAERS Safety Report 23151292 (Version 1)
Quarter: 2023Q4

REPORT INFORMATION
  Report Type: Spontaneous
  Country: US (occurrence: US)
  Receive Date: 20231107
  Receipt Date: 20231107
  Transmission Date: 20240110
  Serious: No
  Sender: FDA-Public Use
  Company Number: US-Accord-374042

PATIENT

DRUGS (1)
  1. REGADENOSON [Suspect]
     Active Substance: REGADENOSON
     Indication: Product used for unknown indication
     Dosage: 0.4MG/5ML

REACTIONS (5)
  - Chills [Unknown]
  - Tremor [Unknown]
  - Nasopharyngitis [Unknown]
  - Dyspnoea [Unknown]
  - Wheezing [Unknown]
